FAERS Safety Report 8866214 (Version 1)
Quarter: 2012Q4

REPORT INFORMATION
  Report Type: 
  Country: NL (occurrence: NL)
  Receive Date: 20121025
  Receipt Date: 20121025
  Transmission Date: 20130627
  Serious: Yes (Hospitalization)
  Sender: FDA-Public Use
  Company Number: NL-PFIZER INC-2012261835

PATIENT
  Age: 67 Year
  Sex: Female
  Weight: 124.6 kg

DRUGS (5)
  1. GENOTROPIN [Suspect]
     Indication: GROWTH HORMONE DEFICIENCY
     Dosage: 0.3 mg/day, 7 injections/week
     Route: 058
     Dates: start: 20040330
  2. THYRAX [Concomitant]
     Indication: BLOOD THYROID STIMULATING HORMONE DECREASED
     Dosage: UNK
     Dates: start: 1985
  3. SIMVASTATINE [Concomitant]
     Indication: HYPERCHOLESTEROLAEMIA
     Dosage: UNK
     Dates: start: 1985
  4. CO-DIOVAN [Concomitant]
     Indication: ESSENTIAL HYPERTENSION
     Dosage: UNK
     Dates: start: 1985
  5. PANTAZOL [Concomitant]
     Indication: GASTRITIS PROPHYLAXIS
     Dosage: UNK
     Dates: start: 1985

REACTIONS (1)
  - Renal disorder [Unknown]
